FAERS Safety Report 9626330 (Version 3)
Quarter: 2013Q4

REPORT INFORMATION
  Report Type: Spontaneous
  Country: PT (occurrence: PT)
  Receive Date: 20131016
  Receipt Date: 20131202
  Transmission Date: 20140711
  Serious: Yes (Other)
  Sender: FDA-Public Use
  Company Number: PT-PFIZER INC-2013294504

PATIENT
  Age: 38 Year
  Sex: Female
  Weight: 64 kg

DRUGS (6)
  1. ARTHROTEC [Suspect]
     Indication: SPINAL PAIN
     Dosage: 1DF (0.2MG/75 MG), 2X/DAY (12/12H)
     Route: 048
     Dates: start: 20130427, end: 20130527
  2. INDERAL [Concomitant]
     Indication: HEADACHE
     Dosage: 40 MG, 1X/DAY (IN THE MORNING)
     Route: 048
     Dates: start: 201204
  3. THIOCOLCHICOSIDE GENERIS [Concomitant]
     Indication: PAIN
     Dosage: 4 MG, 1X/DAY (IN THE MORNING)
     Route: 048
     Dates: start: 201304
  4. TRAMADOL/ACETAMINOPHEN GENERIS [Concomitant]
     Indication: PAIN
     Dosage: 1 DF, 1X/DAY (IN THE MORNING)
     Route: 048
     Dates: start: 201304
  5. ATARAX [Concomitant]
     Indication: PRURITUS
     Dosage: 25 MG, 1X/DAY (AT NIGHT)
     Route: 048
     Dates: start: 201204
  6. EUTHYROX [Concomitant]
     Indication: THYROID DISORDER
     Dosage: 175 UG, 1X/DAY (AT MORNING)
     Route: 048
     Dates: start: 201303

REACTIONS (3)
  - Dermatitis bullous [Recovering/Resolving]
  - Skin disorder [Recovering/Resolving]
  - Alopecia [Recovering/Resolving]
